FAERS Safety Report 8539004-6 (Version None)
Quarter: 2012Q3

REPORT INFORMATION
  Report Type: 
  Country: None (occurrence: None)
  Receive Date: 20120726
  Receipt Date: 20120723
  Transmission Date: 20120928
  Serious: Yes (Death, Other)
  Sender: FDA-Public Use
  Company Number: PHHY2012CN063170

PATIENT
  Age: 37 Year
  Sex: Male

DRUGS (1)
  1. CYCLOSPORINE [Suspect]
     Indication: PROPHYLAXIS AGAINST GRAFT VERSUS HOST DISEASE
     Dosage: 3 MG/KG, QD

REACTIONS (3)
  - GRAFT VERSUS HOST DISEASE [None]
  - PNEUMONIA [None]
  - ACUTE MYELOID LEUKAEMIA RECURRENT [None]
